FAERS Safety Report 4581542-5 (Version None)
Quarter: 2005Q1

REPORT INFORMATION
  Report Type: 
  Country: None (occurrence: None)
  Receive Date: 20050214
  Receipt Date: 20041110
  Transmission Date: 20050727
  Serious: No
  Sender: FDA-Public Use
  Company Number: US-GLAXOSMITHKLINE-A0533793A

PATIENT
  Age: 40 Year
  Sex: Female

DRUGS (4)
  1. LAMICTAL [Suspect]
     Indication: DRUG USE FOR UNKNOWN INDICATION
     Route: 048
  2. SEROQUEL [Concomitant]
     Dosage: 600MG PER DAY
  3. LEXAPRO [Concomitant]
  4. TOPAMAX [Concomitant]

REACTIONS (4)
  - LYMPHADENOPATHY [None]
  - PAIN [None]
  - PYREXIA [None]
  - RASH GENERALISED [None]
